FAERS Safety Report 16308036 (Version 1)
Quarter: 2019Q2

REPORT INFORMATION
  Report Type: Spontaneous
  Country: US (occurrence: US)
  Receive Date: 20190408
  Receipt Date: 20190408
  Transmission Date: 20190711
  Serious: Yes (Life-Threatening, Hospitalization)
  Sender: FDA-Public Use
  Company Number: None

PATIENT
  Age: 76 Year
  Sex: Male
  Weight: 83.91 kg

DRUGS (1)
  1. SULINDAC. [Suspect]
     Active Substance: SULINDAC
     Indication: BACK PAIN
     Route: 048
     Dates: start: 20180110, end: 20190329

REACTIONS (1)
  - Duodenal ulcer perforation [None]

NARRATIVE: CASE EVENT DATE: 20190330
